FAERS Safety Report 10172891 (Version 7)
Quarter: 2015Q2

REPORT INFORMATION
  Report Type: Spontaneous
  Country: US (occurrence: None)
  Receive Date: 20140513
  Receipt Date: 20150429
  Transmission Date: 20150821
  Serious: Yes (Hospitalization, Other)
  Sender: FDA-Public Use
  Company Number: ADR-2014-00796

PATIENT
  Age: 17 Year
  Sex: Female

DRUGS (6)
  1. BACLOFEN. [Suspect]
     Active Substance: BACLOFEN
     Indication: MUSCLE SPASTICITY
     Dosage: DAY
  2. ORAL BACLOFEN [Suspect]
     Active Substance: BACLOFEN
  3. LIORESAL [Suspect]
     Active Substance: BACLOFEN
     Dosage: 500 MCG/ML: DOSE 155.11 MCG PER DAY
  4. NORA BE [Suspect]
     Active Substance: NORETHINDRONE
     Indication: CONTRACEPTION
  5. PROGESTERONE. [Suspect]
     Active Substance: PROGESTERONE
  6. LIORESAL [Suspect]
     Active Substance: BACLOFEN
     Dosage: 2000 MCG/ML FPDR 163.12 MCG/DAY

REACTIONS (22)
  - Pain in extremity [None]
  - Device physical property issue [None]
  - Drug withdrawal syndrome [None]
  - Nausea [None]
  - Retching [None]
  - Vomiting [None]
  - Device failure [None]
  - Device kink [None]
  - Muscle spasticity [None]
  - Muscle spasms [None]
  - Pruritus [None]
  - Formication [None]
  - Incorrect dose administered [None]
  - Headache [None]
  - Product quality issue [None]
  - Device dislocation [None]
  - Device issue [None]
  - Body temperature decreased [None]
  - Device breakage [None]
  - Cerebrospinal fluid leakage [None]
  - Dizziness [None]
  - Back pain [None]
